FAERS Safety Report 7374725-2 (Version None)
Quarter: 2011Q1

REPORT INFORMATION
  Report Type: 
  Country: None (occurrence: None)
  Receive Date: 20110325
  Receipt Date: 20100930
  Transmission Date: 20110831
  Serious: No
  Sender: FDA-Public Use
  Company Number: US-MYLANLABS-2010S1016295

PATIENT
  Sex: Female
  Weight: 44 kg

DRUGS (7)
  1. XANAX [Concomitant]
  2. PROZAC [Concomitant]
  3. FENTANYL-100 [Suspect]
     Indication: ABDOMINAL PAIN UPPER
  4. PANCREASE [Concomitant]
     Indication: PANCREATITIS
  5. FENTANYL-100 [Suspect]
     Indication: ARTHRITIS
  6. DILANTIN [Concomitant]
     Indication: CONVULSION
  7. FENTANYL-100 [Suspect]
     Indication: OSTEOPOROSIS

REACTIONS (1)
  - DRUG SCREEN NEGATIVE [None]
